FAERS Safety Report 11678643 (Version 1)
Quarter: 2015Q4

REPORT INFORMATION
  Report Type: Spontaneous
  Country: US (occurrence: US)
  Receive Date: 20151028
  Receipt Date: 20151028
  Transmission Date: 20160304
  Serious: No
  Sender: FDA-Public Use
  Company Number: US-IMPAX LABORATORIES, INC-2015-IPXL-00795

PATIENT
  Age: 55 Year
  Sex: Female

DRUGS (4)
  1. RYTARY [Suspect]
     Active Substance: CARBIDOPA\LEVODOPA
     Indication: PARKINSON^S DISEASE
     Dosage: UNK
     Route: 048
     Dates: start: 2015
  2. HUMIRA [Interacting]
     Active Substance: ADALIMUMAB
     Indication: PSORIATIC ARTHROPATHY
     Dosage: (40 MG,1 IN 2 WK)
     Route: 058
     Dates: start: 20150204, end: 20150226
  3. HUMIRA [Interacting]
     Active Substance: ADALIMUMAB
     Dosage: (40 MG,L IN 2 WK)
     Route: 058
     Dates: start: 20150324, end: 20150331
  4. HUMIRA [Interacting]
     Active Substance: ADALIMUMAB
     Dosage: (40 MG,1 IN 2 WK)
     Route: 058
     Dates: start: 20150516

REACTIONS (2)
  - Adverse drug reaction [Unknown]
  - Joint swelling [Unknown]

NARRATIVE: CASE EVENT DATE: 201503
